FAERS Safety Report 6054648-1 (Version None)
Quarter: 2009Q1

REPORT INFORMATION
  Report Type: 
  Country: None (occurrence: None)
  Receive Date: 20090128
  Receipt Date: 20090116
  Transmission Date: 20090719
  Serious: Yes (Death)
  Sender: FDA-Public Use
  Company Number: US-RANBAXY-2009RR-21029

PATIENT
  Age: 54 Year
  Sex: Female

DRUGS (4)
  1. SERTRALINE [Suspect]
     Indication: COMPLETED SUICIDE
  2. ACTIVATED CHARCOAL [Suspect]
     Indication: COMPLETED SUICIDE
  3. ZIPRASIDONE HCL [Suspect]
     Indication: COMPLETED SUICIDE
  4. ZOLPIDEM TARTRATE [Suspect]
     Indication: COMPLETED SUICIDE

REACTIONS (1)
  - COMPLETED SUICIDE [None]
